FAERS Safety Report 5075725-8 (Version None)
Quarter: 2006Q3

REPORT INFORMATION
  Report Type: 
  Country: None (occurrence: None)
  Receive Date: 20060807
  Receipt Date: 20060726
  Transmission Date: 20061208
  Serious: Yes (Other)
  Sender: FDA-Public Use
  Company Number: 2006092694

PATIENT
  Age: 72 Year
  Sex: Female
  Weight: 58.0604 kg

DRUGS (12)
  1. TIKOSYN [Suspect]
     Indication: HEART RATE IRREGULAR
     Dosage: SEE IMAGE
     Dates: start: 20020101, end: 20020101
  2. TIKOSYN [Suspect]
     Indication: HEART RATE IRREGULAR
     Dosage: SEE IMAGE
     Dates: start: 20020101, end: 20030101
  3. LEVOTHYROXIE (LEVOTHYROXINE) [Concomitant]
  4. DIGOXIN [Concomitant]
  5. WARFARIN SODIUM [Concomitant]
  6. COZAAR [Concomitant]
  7. ACTOS [Concomitant]
  8. ATENOLOL [Concomitant]
  9. ALLOPURINOL [Concomitant]
  10. BABYPYRIN (ACETYLSALICYLIC ACID) [Concomitant]
  11. NIACIN [Concomitant]
  12. CRESTOR [Concomitant]

REACTIONS (4)
  - CONDITION AGGRAVATED [None]
  - HEART RATE IRREGULAR [None]
  - KIDNEY INFECTION [None]
  - MEDICATION RESIDUE [None]
